FAERS Safety Report 18783176 (Version 2)
Quarter: 2021Q1

REPORT INFORMATION
  Report Type: Other
  Country: US (occurrence: US)
  Receive Date: 20210125
  Receipt Date: 20210318
  Transmission Date: 20210419
  Serious: Yes (Other)
  Sender: FDA-Public Use
  Company Number: US-NEUROCRINE BIOSCIENCES INC.-2021NBI00217

PATIENT

DRUGS (3)
  1. INGREZZA [Suspect]
     Active Substance: VALBENAZINE
     Dosage: 80 MILLIGRAM QD
     Route: 048
     Dates: start: 202012
  2. INVEGA [Concomitant]
     Active Substance: PALIPERIDONE
     Dosage: UNK
  3. INGREZZA [Suspect]
     Active Substance: VALBENAZINE
     Indication: TARDIVE DYSKINESIA
     Dosage: 40 MILLIGRAM QD
     Route: 048
     Dates: start: 202012, end: 202012

REACTIONS (2)
  - Cerebrovascular accident [Unknown]
  - Drooling [Recovered/Resolved]

NARRATIVE: CASE EVENT DATE: 20201225
